FAERS Safety Report 17931142 (Version 2)
Quarter: 2021Q2

REPORT INFORMATION
  Report Type: Spontaneous
  Country: US (occurrence: US)
  Receive Date: 20200623
  Receipt Date: 20210628
  Transmission Date: 20210717
  Serious: No
  Sender: FDA-Public Use
  Company Number: US-HORIZON-DUE-0182-2020

PATIENT
  Sex: Female

DRUGS (3)
  1. DUEXIS [Suspect]
     Active Substance: FAMOTIDINE\IBUPROFEN
     Indication: PRODUCT USED FOR UNKNOWN INDICATION
  2. ACTEMRA [Concomitant]
     Active Substance: TOCILIZUMAB
  3. RELAFEN [Concomitant]
     Active Substance: NABUMETONE

REACTIONS (3)
  - Hepatic enzyme increased [Unknown]
  - Platelet count decreased [Unknown]
  - Pain [Unknown]
